FAERS Safety Report 7770547-9 (Version None)
Quarter: 2011Q3

REPORT INFORMATION
  Report Type: 
  Country: None (occurrence: None)
  Receive Date: 20110922
  Receipt Date: 20101018
  Transmission Date: 20111222
  Serious: No
  Sender: FDA-Public Use
  Company Number: US-ASTRAZENECA-2010SE49188

PATIENT
  Sex: Male

DRUGS (1)
  1. SEROQUEL [Suspect]
     Route: 048
     Dates: start: 20100901

REACTIONS (5)
  - ANXIETY [None]
  - INSOMNIA [None]
  - AGITATION [None]
  - NEGATIVE THOUGHTS [None]
  - SOMNOLENCE [None]
